FAERS Safety Report 9059758 (Version 1)
Quarter: 2013Q1

REPORT INFORMATION
  Report Type: Spontaneous
  Country: US (occurrence: None)
  Receive Date: 20130206
  Receipt Date: 20130206
  Transmission Date: 20140127
  Serious: Yes (Life-Threatening, Disabling, Other)
  Sender: FDA-Public Use
  Company Number: None

PATIENT
  Age: 48 Year
  Sex: Male
  Weight: 81.65 kg

DRUGS (1)
  1. LYRICA 75MG PFIZER [Suspect]
     Indication: CARPAL TUNNEL DECOMPRESSION
     Dosage: 75MG TWICE TWICE A DAY PO
     Route: 048
     Dates: start: 20121001, end: 20121101

REACTIONS (5)
  - Daydreaming [None]
  - Arthralgia [None]
  - Depression [None]
  - Suicidal ideation [None]
  - Pain in extremity [None]
